FAERS Safety Report 7444835-X (Version None)
Quarter: 2011Q2

REPORT INFORMATION
  Report Type: 
  Country: None (occurrence: None)
  Receive Date: 20110420
  Receipt Date: 20110411
  Transmission Date: 20111010
  Serious: Yes (Hospitalization, Other)
  Sender: FDA-Public Use
  Company Number: 20109134

PATIENT
  Age: 18 Year
  Sex: Male

DRUGS (1)
  1. LIORESAL [Suspect]
     Indication: MUSCLE SPASTICITY
     Dosage: 230 MCG, DAILY, INTRATHECAL
     Route: 037

REACTIONS (6)
  - UNEVALUABLE EVENT [None]
  - MEDICAL DEVICE COMPLICATION [None]
  - WITHDRAWAL SYNDROME [None]
  - IMPLANT SITE EFFUSION [None]
  - IMPLANT SITE SWELLING [None]
  - DEVICE RELATED INFECTION [None]
